FAERS Safety Report 16642499 (Version 2)
Quarter: 2019Q3

REPORT INFORMATION
  Report Type: Spontaneous
  Country: US (occurrence: US)
  Receive Date: 20190729
  Receipt Date: 20190930
  Transmission Date: 20191004
  Serious: No
  Sender: FDA-Public Use
  Company Number: US-PFIZER INC-2019318909

PATIENT
  Age: 75 Year
  Sex: Female

DRUGS (2)
  1. XELJANZ XR [Suspect]
     Active Substance: TOFACITINIB CITRATE
     Dosage: 11 MG, UNK
     Dates: start: 201906
  2. RASUVO [Concomitant]
     Active Substance: METHOTREXATE SODIUM
     Dosage: 15 MG, UNK

REACTIONS (2)
  - Condition aggravated [Unknown]
  - Balance disorder [Unknown]
